FAERS Safety Report 19073406 (Version 1)
Quarter: 2021Q1

REPORT INFORMATION
  Report Type: Other
  Country: US (occurrence: US)
  Receive Date: 20210330
  Receipt Date: 20210330
  Transmission Date: 20210420
  Serious: Yes (Other)
  Sender: FDA-Public Use
  Company Number: US-ROCHE-2731078

PATIENT
  Age: 90 Year
  Sex: Male

DRUGS (3)
  1. EMICIZUMAB. [Suspect]
     Active Substance: EMICIZUMAB
     Indication: ACQUIRED HAEMOPHILIA
     Route: 058
  2. EMICIZUMAB. [Suspect]
     Active Substance: EMICIZUMAB
     Dosage: MAINTAINING EMICIZUMAB TROUGH PLASMA LEVELS BETWEEN 9.0?11.9 UG/ML
     Route: 058
  3. EMICIZUMAB. [Suspect]
     Active Substance: EMICIZUMAB
     Route: 058

REACTIONS (2)
  - Arthritis bacterial [Unknown]
  - Off label use [Unknown]
